FAERS Safety Report 15638130 (Version 1)
Quarter: 2018Q4

REPORT INFORMATION
  Report Type: Spontaneous
  Country: FR (occurrence: FR)
  Receive Date: 20181120
  Receipt Date: 20181120
  Transmission Date: 20190205
  Serious: Yes (Other)
  Sender: FDA-Public Use
  Company Number: FR-BAYER-2018-213492

PATIENT

DRUGS (2)
  1. ACETYLSALICYLIC ACID({=100 MG) [Suspect]
     Active Substance: ASPIRIN
     Dosage: UNK
     Route: 064
  2. FIBRINOGEN [Concomitant]
     Active Substance: FIBRINOGEN HUMAN
     Route: 064

REACTIONS (4)
  - Foetal exposure during pregnancy [None]
  - Premature baby [None]
  - Foetal hypokinesia [None]
  - Low birth weight baby [None]
